FAERS Safety Report 13250866 (Version 1)
Quarter: 2017Q1

REPORT INFORMATION
  Report Type: Spontaneous
  Country: US (occurrence: US)
  Receive Date: 20170220
  Receipt Date: 20170220
  Transmission Date: 20170428
  Serious: No
  Sender: FDA-Public Use
  Company Number: US-TEVA-636618USA

PATIENT
  Sex: Female
  Weight: 49.94 kg

DRUGS (1)
  1. AMOXICILLIN. [Suspect]
     Active Substance: AMOXICILLIN
     Indication: UPPER RESPIRATORY TRACT INFECTION
     Dosage: 400MG/5ML
     Route: 065
     Dates: start: 20160215

REACTIONS (1)
  - Abdominal pain upper [Unknown]
